FAERS Safety Report 17807897 (Version 1)
Quarter: 2020Q2

REPORT INFORMATION
  Report Type: Spontaneous
  Country: US (occurrence: US)
  Receive Date: 20200520
  Receipt Date: 20200520
  Transmission Date: 20200714
  Serious: Yes (Other)
  Sender: FDA-Public Use
  Company Number: None

PATIENT
  Age: 59 Year
  Sex: Female
  Weight: 84.1 kg

DRUGS (36)
  1. LOVENOX [Concomitant]
     Active Substance: ENOXAPARIN SODIUM
  2. MAGNESIUM SULFATE. [Concomitant]
     Active Substance: MAGNESIUM SULFATE
  3. FANTANYL [Concomitant]
     Active Substance: FENTANYL
  4. ANCEF [Concomitant]
     Active Substance: CEFAZOLIN SODIUM
  5. POTASSIUM BICARBONATE. [Concomitant]
     Active Substance: POTASSIUM BICARBONATE
  6. ZEMURON [Concomitant]
     Active Substance: ROCURONIUM BROMIDE
  7. REMDESIVIR 100MG [Suspect]
     Active Substance: REMDESIVIR
     Indication: COVID-19
     Route: 042
     Dates: start: 20200513, end: 20200518
  8. VITD3 [Concomitant]
  9. MIRALAX [Concomitant]
     Active Substance: POLYETHYLENE GLYCOL 3350
  10. PROTONIX [Concomitant]
     Active Substance: PANTOPRAZOLE SODIUM
  11. VANCOMYCIN [Concomitant]
     Active Substance: VANCOMYCIN
  12. REMDESIVIR 100MG [Suspect]
     Active Substance: REMDESIVIR
  13. ACETAMINOPHEN. [Concomitant]
     Active Substance: ACETAMINOPHEN
  14. ZOFRAN [Concomitant]
     Active Substance: ONDANSETRON HYDROCHLORIDE
  15. PROPOFOL. [Concomitant]
     Active Substance: PROPOFOL
  16. AMIDATE [Concomitant]
     Active Substance: ETOMIDATE
  17. REMDESIVIR 200MG [Suspect]
     Active Substance: REMDESIVIR
     Indication: COVID-19
     Route: 042
     Dates: start: 20200512, end: 20200512
  18. REMDESIVIR 100MG [Suspect]
     Active Substance: REMDESIVIR
  19. TITRALAC [Concomitant]
     Active Substance: CALCIUM CARBONATE
  20. CALCIUM GLUCONATE. [Concomitant]
     Active Substance: CALCIUM GLUCONATE
  21. QUELLCIN [Concomitant]
  22. VERSED [Concomitant]
     Active Substance: MIDAZOLAM HYDROCHLORIDE
  23. HUMALOG [Concomitant]
     Active Substance: INSULIN LISPRO
  24. HYDROMORPHONE [Concomitant]
     Active Substance: HYDROMORPHONE
  25. SEROQUEL [Concomitant]
     Active Substance: QUETIAPINE FUMARATE
  26. LASIX [Concomitant]
     Active Substance: FUROSEMIDE
  27. LEVOPHED [Concomitant]
     Active Substance: NOREPINEPHRINE BITARTRATE
  28. CLOZARIL [Concomitant]
     Active Substance: CLOZAPINE
  29. ROCEPHIN [Concomitant]
     Active Substance: CEFTRIAXONE SODIUM
  30. BENADRYL [Concomitant]
     Active Substance: DIPHENHYDRAMINE HYDROCHLORIDE
  31. POTASSIUM CHLORIDE. [Concomitant]
     Active Substance: POTASSIUM CHLORIDE
  32. HUMULIN NOS [Concomitant]
     Active Substance: INSULIN HUMAN
  33. FLAGYL [Concomitant]
     Active Substance: METRONIDAZOLE\METRONIDAZOLE HYDROCHLORIDE
  34. ZENPEP [Concomitant]
     Active Substance: PANCRELIPASE AMYLASE\PANCRELIPASE LIPASE\PANCRELIPASE PROTEASE
  35. PRILOSEC [Concomitant]
     Active Substance: OMEPRAZOLE MAGNESIUM
  36. CONVALESCENT PLASM [Concomitant]

REACTIONS (2)
  - Transaminases increased [None]
  - Aspartate aminotransferase increased [None]

NARRATIVE: CASE EVENT DATE: 20200519
